FAERS Safety Report 4724521-7 (Version None)
Quarter: 2005Q3

REPORT INFORMATION
  Report Type: 
  Country: None (occurrence: None)
  Receive Date: 20050726
  Receipt Date: 20050722
  Transmission Date: 20060218
  Serious: Yes (Death, Hospitalization)
  Sender: FDA-Public Use
  Company Number: US-BOEHRINGER INGELHEIM PHARMACEUTICALS, INC.-2005-BP-12594BP

PATIENT
  Sex: Male

DRUGS (6)
  1. FLOMAX [Suspect]
     Route: 048
     Dates: start: 20031008
  2. PROSCAR [Suspect]
     Route: 048
     Dates: start: 20000718
  3. TRIAMTERENE AND HYDROCHLOROTHIAZIDE [Concomitant]
  4. ACCUPRIL [Concomitant]
  5. CLARINEX [Concomitant]
  6. CLORAZEPATE DIPOTASSIUM [Concomitant]

REACTIONS (5)
  - DIABETES MELLITUS [None]
  - DIZZINESS [None]
  - PNEUMONIA [None]
  - PULMONARY EMBOLISM [None]
  - RESPIRATORY FAILURE [None]
